FAERS Safety Report 7741813-8 (Version None)
Quarter: 2011Q3

REPORT INFORMATION
  Report Type: 
  Country: None (occurrence: None)
  Receive Date: 20110912
  Receipt Date: 20110906
  Transmission Date: 20111222
  Serious: No
  Sender: FDA-Public Use
  Company Number: US-PFIZER INC-2011209457

PATIENT
  Sex: Female
  Weight: 118 kg

DRUGS (1)
  1. DEPO-PROVERA [Suspect]
     Indication: CONTRACEPTION
     Dosage: UNK
     Dates: end: 20101201

REACTIONS (4)
  - MENSTRUATION IRREGULAR [None]
  - PANIC ATTACK [None]
  - MOOD ALTERED [None]
  - AMENORRHOEA [None]
